FAERS Safety Report 7204932-0 (Version None)
Quarter: 2010Q4

REPORT INFORMATION
  Report Type: 
  Country: None (occurrence: None)
  Receive Date: 20101230
  Receipt Date: 20101217
  Transmission Date: 20110411
  Serious: Yes (Hospitalization, Other)
  Sender: FDA-Public Use
  Company Number: PHEH2007US15775

PATIENT
  Sex: Female

DRUGS (2)
  1. AREDIA [Suspect]
  2. ZOMETA [Suspect]

REACTIONS (17)
  - CENTRAL VENOUS CATHETERISATION [None]
  - CEREBELLOPONTINE ANGLE TUMOUR [None]
  - CHEST PAIN [None]
  - COMPRESSION FRACTURE [None]
  - DYSPNOEA [None]
  - FACET JOINT SYNDROME [None]
  - FLATULENCE [None]
  - INTERVERTEBRAL DISC DEGENERATION [None]
  - INTERVERTEBRAL DISC DISORDER [None]
  - INTERVERTEBRAL DISC PROTRUSION [None]
  - LUMBAR SPINAL STENOSIS [None]
  - MULTIPLE MYELOMA [None]
  - MYELODYSPLASTIC SYNDROME [None]
  - NECK MASS [None]
  - OSTEOLYSIS [None]
  - OSTEONECROSIS OF JAW [None]
  - PAROTID GLAND ENLARGEMENT [None]
